FAERS Safety Report 6986368-0 (Version None)
Quarter: 2010Q3

REPORT INFORMATION
  Report Type: 
  Country: None (occurrence: None)
  Receive Date: 20100915
  Receipt Date: 20090624
  Transmission Date: 20110219
  Serious: No
  Sender: FDA-Public Use
  Company Number: US-WYE-H09911909

PATIENT
  Sex: Male
  Weight: 68.1 kg

DRUGS (2)
  1. PRISTIQ [Suspect]
     Indication: DEPRESSION
     Route: 048
  2. TOPROL-XL [Concomitant]

REACTIONS (1)
  - DRUG SCREEN POSITIVE [None]
